FAERS Safety Report 8108104-7 (Version None)
Quarter: 2011Q4

REPORT INFORMATION
  Report Type: 
  Country: None (occurrence: None)
  Receive Date: 20111227
  Receipt Date: 20111013
  Transmission Date: 20120403
  Serious: Yes (Other)
  Sender: FDA-Public Use
  Company Number: PHHY2011US58765

PATIENT
  Age: 68 Year
  Sex: Male

DRUGS (19)
  1. FISH OIL (FISH OIL) [Concomitant]
  2. GILENYA [Suspect]
     Dosage: 0.5 MG, QD, ORAL
     Route: 048
  3. VICODIN [Concomitant]
  4. LIPITOR [Concomitant]
  5. CYMBALTA [Concomitant]
  6. MULTIVITAMIN [Concomitant]
  7. OXYGEN (OXYGEN) [Concomitant]
  8. ZETIA [Concomitant]
  9. NEXIUM [Concomitant]
  10. BACLOFEN [Concomitant]
  11. RESTASIS [Concomitant]
  12. GLYCEROL 2.6% [Concomitant]
  13. AMPHETAMINE SULFATE [Concomitant]
  14. CELEXA [Concomitant]
  15. MIRALAX [Concomitant]
  16. ALENDRONATE SODIUM [Concomitant]
  17. OXYBUTYNIN [Concomitant]
  18. GILENYA [Suspect]
     Indication: MULTIPLE SCLEROSIS
     Dosage: 0.5 MG, QD, ORAL
     Route: 048
     Dates: start: 20110629
  19. DIAZEPAM [Concomitant]

REACTIONS (5)
  - DRY MOUTH [None]
  - VISION BLURRED [None]
  - RASH [None]
  - HERPES ZOSTER [None]
  - URTICARIA [None]
